FAERS Safety Report 5720204-5 (Version None)
Quarter: 2008Q2

REPORT INFORMATION
  Report Type: 
  Country: None (occurrence: None)
  Receive Date: 20080428
  Receipt Date: 20070508
  Transmission Date: 20081010
  Serious: No
  Sender: FDA-Public Use
  Company Number: US-AMGEN-US223525

PATIENT
  Sex: Male
  Weight: 59.9 kg

DRUGS (10)
  1. SENSIPAR [Suspect]
     Indication: DRUG USE FOR UNKNOWN INDICATION
     Route: 048
     Dates: start: 20050509
  2. PROGRAF [Concomitant]
     Route: 065
  3. ZETIA [Concomitant]
     Route: 065
  4. MAGNESIUM [Concomitant]
     Route: 065
  5. NEXIUM [Concomitant]
     Route: 065
  6. FOLIC ACID [Concomitant]
     Route: 065
  7. PLAVIX [Concomitant]
     Route: 065
  8. FUROSEMIDE [Concomitant]
     Route: 065
  9. DENOSUMAB - COMPARATOR (FOSAMAX) [Concomitant]
     Route: 065
  10. FELODIPINE [Concomitant]
     Route: 065

REACTIONS (2)
  - DIZZINESS [None]
  - VERTIGO [None]
